FAERS Safety Report 9980721 (Version 2)
Quarter: 2014Q1

REPORT INFORMATION
  Report Type: Spontaneous
  Country: US (occurrence: US)
  Receive Date: 20140307
  Receipt Date: 20140325
  Transmission Date: 20141002
  Serious: Yes (Other)
  Sender: FDA-Public Use
  Company Number: US-BIOGENIDEC-2014BI018878

PATIENT
  Age: 58 Year
  Sex: Female
  Weight: 82 kg

DRUGS (4)
  1. TECFIDERA [Suspect]
     Indication: MULTIPLE SCLEROSIS
     Route: 048
     Dates: start: 201310
  2. ADDERALL [Concomitant]
  3. LORTAB [Concomitant]
  4. BACLOFEN [Concomitant]

REACTIONS (2)
  - Gastrointestinal candidiasis [Unknown]
  - Skin lesion [Not Recovered/Not Resolved]
